FAERS Safety Report 9264847 (Version 1)
Quarter: 2013Q2

REPORT INFORMATION
  Report Type: Spontaneous
  Country: GB (occurrence: GB)
  Receive Date: 20130501
  Receipt Date: 20130501
  Transmission Date: 20140414
  Serious: Yes (Other)
  Sender: FDA-Public Use
  Company Number: PHFR2013GB001244

PATIENT
  Age: 32 Year
  Sex: Female

DRUGS (12)
  1. CLOZARIL [Suspect]
     Indication: PARKINSON^S DISEASE
     Dosage: BID  (50 MG AT MORNING, 75 MG AT EVENING)
     Route: 048
     Dates: start: 20090720
  2. CLOZARIL [Suspect]
     Dosage: 275 MG, UNK
     Route: 048
  3. CLOZARIL [Suspect]
     Dosage: UNK, DOSE REDUCED
     Dates: start: 201008, end: 20100919
  4. CLOZARIL [Suspect]
     Dosage: UNK
  5. FLUOXETINE [Concomitant]
     Indication: DEPRESSION
     Dosage: 40 MG, UNK
     Route: 048
  6. SODIUM VALPROATE [Concomitant]
     Dosage: 2000 MG, UNK
     Route: 048
  7. GABAPENTIN [Concomitant]
     Dosage: 900 MG, UNK
     Route: 048
  8. PYRIDOXINE [Concomitant]
     Indication: HYPOVITAMINOSIS
     Dosage: 100 MG, UNK
     Route: 048
  9. CLENIL MODULITE [Concomitant]
     Indication: ASTHMA
     Dosage: 400 UG, UNK
  10. SALMETEROL [Concomitant]
     Indication: ASTHMA
     Dosage: 50 UG, UNK
  11. DALACIN T [Concomitant]
     Dosage: UNK, TWICE DAILY
     Route: 061
  12. DOCUSATE SODIUM [Concomitant]
     Indication: CONSTIPATION
     Dosage: 200 MG, UNK
     Route: 048

REACTIONS (4)
  - Gait disturbance [Unknown]
  - Sedation [Recovered/Resolved]
  - Salivary hypersecretion [Recovered/Resolved]
  - Drug administration error [Unknown]
